FAERS Safety Report 10769790 (Version 1)
Quarter: 2015Q1

REPORT INFORMATION
  Report Type: Other
  Country: GB (occurrence: GB)
  Receive Date: 20150206
  Receipt Date: 20150206
  Transmission Date: 20150721
  Serious: Yes (Hospitalization, Other)
  Sender: FDA-Public Use
  Company Number: GB-TARO PHARMACEUTICALS U.S.A., INC-2015SUN00332

PATIENT
  Age: 90 Year
  Sex: Male

DRUGS (17)
  1. ISOSORBIDE MONONITRATE. [Concomitant]
     Active Substance: ISOSORBIDE MONONITRATE
  2. NICORANDIL [Concomitant]
     Active Substance: NICORANDIL
  3. CARBOCISTEINE [Concomitant]
     Active Substance: CARBOCYSTEINE
  4. DILZEM XL [Concomitant]
  5. GTN [Concomitant]
     Active Substance: NITROGLYCERIN
  6. SYMBICORT [Concomitant]
     Active Substance: BUDESONIDE\FORMOTEROL FUMARATE DIHYDRATE
     Dosage: 200/6
  7. TIOTROPIUM [Concomitant]
     Active Substance: TIOTROPIUM
  8. BRICANYL [Concomitant]
     Active Substance: TERBUTALINE SULFATE
     Route: 055
  9. LACTULOSE. [Concomitant]
     Active Substance: LACTULOSE
  10. CLARITHROMYCIN. [Concomitant]
     Active Substance: CLARITHROMYCIN
  11. AZELASTINE [Concomitant]
     Active Substance: AZELASTINE
  12. ASPIRIN. [Concomitant]
     Active Substance: ASPIRIN
  13. COCODAMOL [Concomitant]
     Active Substance: ACETAMINOPHEN\CODEINE PHOSPHATE
     Dosage: 30/500. TAKEN 4 TIMES A DAY WHEN NEEDED.
  14. FLIXONASE [Concomitant]
     Active Substance: FLUTICASONE PROPIONATE
  15. TAMSULOSIN [Concomitant]
     Active Substance: TAMSULOSIN
  16. WARFARIN [Suspect]
     Active Substance: WARFARIN
     Indication: PRODUCT USED FOR UNKNOWN INDICATION
     Dosage: APC
     Route: 065
  17. CO-AMILOFRUSE [Concomitant]
     Active Substance: AMILORIDE\FUROSEMIDE
     Dosage: 5/40. TAKEN IN THE MORNING.

REACTIONS (5)
  - Syncope [Unknown]
  - Orthostatic hypotension [Unknown]
  - Abdominal pain [Unknown]
  - Rectal haemorrhage [Recovering/Resolving]
  - Haemorrhoids [Unknown]

NARRATIVE: CASE EVENT DATE: 20150112
